FAERS Safety Report 19996236 (Version 1)
Quarter: 2021Q4

REPORT INFORMATION
  Report Type: Spontaneous
  Country: US (occurrence: US)
  Receive Date: 20211025
  Receipt Date: 20211025
  Transmission Date: 20220303
  Serious: Yes (Hospitalization)
  Sender: FDA-Public Use
  Company Number: None

PATIENT
  Sex: Female

DRUGS (3)
  1. SILDENAFIL [Suspect]
     Active Substance: SILDENAFIL
     Indication: Immunodeficiency
     Route: 048
  2. ASPIRIN LOW TAB [Concomitant]
  3. RAMIPRIL CAP [Concomitant]

REACTIONS (1)
  - Cardiac operation [None]
